FAERS Safety Report 12745452 (Version 5)
Quarter: 2017Q2

REPORT INFORMATION
  Report Type: Spontaneous
  Country: US (occurrence: US)
  Receive Date: 20160915
  Receipt Date: 20170626
  Transmission Date: 20170830
  Serious: Yes (Hospitalization, Other)
  Sender: FDA-Public Use
  Company Number: US-PFIZER INC-2016429344

PATIENT
  Age: 50 Year
  Sex: Female

DRUGS (3)
  1. IBRANCE [Suspect]
     Active Substance: PALBOCICLIB
     Indication: BREAST CANCER METASTATIC
     Dosage: 125 MG, UNK
     Dates: start: 20150301
  2. LETROZOLE. [Suspect]
     Active Substance: LETROZOLE
     Indication: BREAST CANCER METASTATIC
     Dosage: UNK
     Dates: start: 201506
  3. IBRANCE [Suspect]
     Active Substance: PALBOCICLIB
     Dosage: 125 MG, UNK
     Dates: start: 201506

REACTIONS (9)
  - Night sweats [Unknown]
  - Dry skin [Unknown]
  - Back pain [Unknown]
  - Urinary tract infection [Recovering/Resolving]
  - Alopecia [Unknown]
  - Neutropenia [Recovering/Resolving]
  - Bronchitis [Recovering/Resolving]
  - White blood cell count decreased [Unknown]
  - Arthralgia [Unknown]
